FAERS Safety Report 25743187 (Version 1)
Quarter: 2025Q3

REPORT INFORMATION
  Report Type: Report from Study
  Country: US (occurrence: US)
  Receive Date: 20250830
  Receipt Date: 20250830
  Transmission Date: 20251020
  Serious: Yes (Other)
  Sender: NOVARTIS
  Company Number: US-002147023-NVSC2025US103307

PATIENT
  Age: 73 Year
  Sex: Female

DRUGS (1)
  1. LEQVIO [Suspect]
     Active Substance: INCLISIRAN SODIUM
     Indication: Product used for unknown indication
     Route: 058
     Dates: start: 20250801

REACTIONS (4)
  - Diabetes mellitus [Unknown]
  - Weight loss poor [Unknown]
  - Bone disorder [Unknown]
  - Nerve injury [Unknown]

NARRATIVE: CASE EVENT DATE: 20250801
